FAERS Safety Report 23047484 (Version 1)
Quarter: 2023Q4

REPORT INFORMATION
  Report Type: Spontaneous
  Country: US (occurrence: US)
  Receive Date: 20231010
  Receipt Date: 20231010
  Transmission Date: 20240109
  Serious: Yes (Hospitalization, Other)
  Sender: FDA-Public Use
  Company Number: US-SEATTLE GENETICS-2023SGN10975

PATIENT
  Sex: Female

DRUGS (1)
  1. TUKYSA [Suspect]
     Active Substance: TUCATINIB
     Indication: Hormone receptor positive breast cancer
     Route: 065

REACTIONS (3)
  - General symptom [Unknown]
  - Metastases to spine [Unknown]
  - Malignant neoplasm progression [Unknown]
